FAERS Safety Report 5630644-0 (Version None)
Quarter: 2008Q1

REPORT INFORMATION
  Report Type: 
  Country: None (occurrence: None)
  Receive Date: 20080212
  Receipt Date: 20080204
  Transmission Date: 20080703
  Serious: Yes (Other)
  Sender: FDA-Public Use
  Company Number: 2007335888

PATIENT
  Age: 73 Year
  Sex: Female

DRUGS (7)
  1. LISTERINE WHITENING QUICK DISSOLVING STRIPS (NO ACTIVE INGREDIENT) [Suspect]
     Indication: DENTAL CARE
     Dosage: AS DIRECTED EVERY DAY, ORAL
     Route: 048
     Dates: start: 20071026, end: 20071029
  2. CALCIUM (CALCIUM) [Concomitant]
  3. VITAMIN C (VITAMIN C) [Concomitant]
  4. ACETAMINOPHEN [Concomitant]
  5. FISH OIL (FISH OIL) [Concomitant]
  6. CENTRUM (MINERALS NOS, VITAMINS NOS) [Concomitant]
  7. ASPIRIN [Concomitant]

REACTIONS (2)
  - APPLICATION SITE BURN [None]
  - GINGIVITIS [None]
